FAERS Safety Report 20799531 (Version 1)
Quarter: 2022Q2

REPORT INFORMATION
  Report Type: Spontaneous
  Country: US (occurrence: US)
  Receive Date: 20220509
  Receipt Date: 20220509
  Transmission Date: 20220720
  Serious: No
  Sender: FDA-Public Use
  Company Number: US-BRISTOL-MYERS SQUIBB COMPANY-2022-019905

PATIENT
  Sex: Female
  Weight: 72.57 kg

DRUGS (2)
  1. POMALYST [Suspect]
     Active Substance: POMALIDOMIDE
     Indication: Plasma cell myeloma
     Dosage: DAILY 3 WEEKS ON ONE WEEK OFF
     Route: 048
     Dates: start: 20220405
  2. XPOVIO [Concomitant]
     Active Substance: SELINEXOR
     Indication: Plasma cell myeloma
     Route: 048
     Dates: start: 20220405

REACTIONS (6)
  - Nausea [Not Recovered/Not Resolved]
  - Fatigue [Not Recovered/Not Resolved]
  - Hypotension [Unknown]
  - Heart rate decreased [Unknown]
  - Diarrhoea [Recovered/Resolved]
  - Thyroid disorder [Unknown]
